FAERS Safety Report 9512412 (Version 1)
Quarter: 2013Q3

REPORT INFORMATION
  Report Type: Spontaneous
  Country: CA (occurrence: CA)
  Receive Date: 20130910
  Receipt Date: 20130910
  Transmission Date: 20140515
  Serious: Yes (Hospitalization)
  Sender: FDA-Public Use
  Company Number: PHHY2013CA097040

PATIENT
  Age: 4 Year
  Sex: Female

DRUGS (1)
  1. TRIAMCINOLONE [Suspect]
     Indication: JUVENILE IDIOPATHIC ARTHRITIS

REACTIONS (10)
  - Ischaemia [Recovered/Resolved]
  - Livedo reticularis [Recovered/Resolved]
  - Skin discolouration [Recovered/Resolved]
  - Cyanosis [Recovered/Resolved]
  - Pain [Recovered/Resolved]
  - Hypersensitivity [Recovered/Resolved]
  - Rash [Recovered/Resolved]
  - Pallor [Recovered/Resolved]
  - Drug administration error [Recovered/Resolved]
  - Discomfort [Recovered/Resolved]
